FAERS Safety Report 22092217 (Version 1)
Quarter: 2023Q1

REPORT INFORMATION
  Report Type: Report from Study
  Country: CA (occurrence: CA)
  Receive Date: 20230314
  Receipt Date: 20230314
  Transmission Date: 20230418
  Serious: Yes (Other)
  Sender: FDA-Public Use
  Company Number: CA-AMGEN-CANSL2022124607

PATIENT
  Age: 56 Year
  Sex: Female

DRUGS (2)
  1. AVSOLA [Suspect]
     Active Substance: INFLIXIMAB-AXXQ
     Indication: Crohn^s disease
     Dosage: 10 MILLIGRAM/KILOGRAM, Q8WK
     Route: 065
     Dates: start: 20220407
  2. AZATHIOPRINE [Concomitant]
     Active Substance: AZATHIOPRINE

REACTIONS (6)
  - Sialoadenitis [Unknown]
  - Off label use [Unknown]
  - Mucous stools [Unknown]
  - Diarrhoea [Unknown]
  - Fatigue [Unknown]
  - Constipation [Unknown]

NARRATIVE: CASE EVENT DATE: 20220407
